FAERS Safety Report 17813055 (Version 1)
Quarter: 2020Q2

REPORT INFORMATION
  Report Type: Spontaneous
  Country: US (occurrence: US)
  Receive Date: 20200521
  Receipt Date: 20200521
  Transmission Date: 20200714
  Serious: No
  Sender: FDA-Public Use
  Company Number: US-TOLMAR, INC.-20US021368

PATIENT
  Age: 62 Year
  Sex: Male

DRUGS (2)
  1. TALIMOGENE LAHERPAREPVEC [Suspect]
     Active Substance: TALIMOGENE LAHERPAREPVEC
     Indication: METASTATIC MALIGNANT MELANOMA
     Dosage: UNK
     Route: 065
  2. IMIQUIMOD. [Suspect]
     Active Substance: IMIQUIMOD
     Indication: METASTATIC MALIGNANT MELANOMA
     Dosage: 1 GRAM, EVENING
     Route: 061

REACTIONS (3)
  - Alopecia [Unknown]
  - Achromotrichia acquired [Unknown]
  - Off label use [Unknown]
